FAERS Safety Report 15260714 (Version 1)
Quarter: 2018Q3

REPORT INFORMATION
  Report Type: Report from Study
  Country: US (occurrence: US)
  Receive Date: 20180809
  Receipt Date: 20180809
  Transmission Date: 20181010
  Serious: Yes (Hospitalization)
  Sender: FDA-Public Use
  Company Number: PHEH2018US032436

PATIENT
  Age: 76 Year
  Sex: Male

DRUGS (21)
  1. TYLENOL [Concomitant]
     Active Substance: ACETAMINOPHEN
     Indication: PYREXIA
     Dosage: 1 DF, Q4H (AS NEEDED)
     Route: 048
  2. CALCIUM [Concomitant]
     Active Substance: CALCIUM
     Indication: HIP FRACTURE
     Dosage: 1 DF, BID
     Route: 048
  3. NOVOLOG [Concomitant]
     Active Substance: INSULIN ASPART
     Indication: TYPE 2 DIABETES MELLITUS
     Route: 065
  4. LEVOTHROID [Concomitant]
     Active Substance: LEVOTHYROXINE SODIUM
     Indication: HYPOTHYROIDISM
     Dosage: 1 DF, QD
     Route: 048
  5. SANDOSTATIN LAR DEPOT [Suspect]
     Active Substance: OCTREOTIDE ACETATE
     Indication: PRODUCT USED FOR UNKNOWN INDICATION
     Route: 065
  6. CHOLECALCIFEROL [Concomitant]
     Active Substance: CHOLECALCIFEROL
     Indication: PRODUCT USED FOR UNKNOWN INDICATION
     Dosage: 400 U, BID
     Route: 065
  7. LIDODERM [Concomitant]
     Active Substance: LIDOCAINE
     Indication: PAIN
     Dosage: KEEP ON FOR 12 HOURS AND REMOVE FOR 12 HOURS
     Route: 065
  8. TOPROL XL [Concomitant]
     Active Substance: METOPROLOL SUCCINATE
     Indication: PRODUCT USED FOR UNKNOWN INDICATION
     Dosage: 25 MG, QD (EVERY MORNING)
     Route: 048
  9. HALDOL [Concomitant]
     Active Substance: HALOPERIDOL
     Indication: RESTLESSNESS
  10. CHRONULAC [Suspect]
     Active Substance: LACTULOSE
     Indication: HEPATIC ENCEPHALOPATHY
     Dosage: 30 ML, BID (20 G)
     Route: 048
  11. TYLENOL [Concomitant]
     Active Substance: ACETAMINOPHEN
     Indication: PAIN
  12. LIDODERM [Concomitant]
     Active Substance: LIDOCAINE
     Indication: HIP FRACTURE
  13. TYLENOL [Concomitant]
     Active Substance: ACETAMINOPHEN
     Indication: HIP FRACTURE
  14. MELATONIN [Concomitant]
     Active Substance: MELATONIN
     Indication: DEPRESSION
     Dosage: UNK, QD (AT BEDTIME)
     Route: 048
  15. XIFAXAN [Concomitant]
     Active Substance: RIFAXIMIN
     Indication: HEPATIC ENCEPHALOPATHY
     Dosage: 1 DF, BID
     Route: 048
  16. REMERON [Concomitant]
     Active Substance: MIRTAZAPINE
     Indication: DEPRESSION
     Dosage: 15 MG, QD (BEDTIME)
     Route: 048
  17. HALDOL [Concomitant]
     Active Substance: HALOPERIDOL
     Indication: DEPRESSION
     Dosage: 0.5 ML, Q4H (1MG) AS NEEDED
     Route: 048
  18. HALDOL [Concomitant]
     Active Substance: HALOPERIDOL
     Indication: ANXIETY
  19. LIDOCAINE VISCOUS [Concomitant]
     Active Substance: LIDOCAINE HYDROCHLORIDE
     Indication: GLOSSODYNIA
     Dosage: UNK (4 TIMES IN A DAY) PRN
     Route: 065
  20. BENGAY GREASELESS [Concomitant]
     Indication: PRODUCT USED FOR UNKNOWN INDICATION
     Dosage: 10?15 %
     Route: 065
  21. FLOMAX [Concomitant]
     Active Substance: TAMSULOSIN HYDROCHLORIDE
     Indication: BENIGN PROSTATIC HYPERPLASIA
     Dosage: 1 DF, QD
     Route: 048

REACTIONS (18)
  - Asthenia [Unknown]
  - Iron deficiency anaemia [Unknown]
  - Chronic hepatic failure [Unknown]
  - Angiodysplasia [Unknown]
  - Contusion [Unknown]
  - Gastric antral vascular ectasia [Unknown]
  - Erythema [Unknown]
  - Essential hypertension [Unknown]
  - Hyperlipidaemia [Unknown]
  - Melaena [Unknown]
  - Hepatocellular carcinoma [Unknown]
  - Gastrointestinal haemorrhage [Unknown]
  - Malnutrition [Unknown]
  - Blood pressure diastolic decreased [Unknown]
  - Abdominal distension [Unknown]
  - Non-alcoholic steatohepatitis [Unknown]
  - Somnolence [Unknown]
  - Metabolic encephalopathy [Unknown]

NARRATIVE: CASE EVENT DATE: 20180705
